FAERS Safety Report 19084062 (Version 1)
Quarter: 2021Q2

REPORT INFORMATION
  Report Type: Spontaneous
  Country: US (occurrence: US)
  Receive Date: 20210401
  Receipt Date: 20210401
  Transmission Date: 20210717
  Serious: No
  Sender: FDA-Public Use
  Company Number: US-SA-2021SA099426

PATIENT
  Sex: Male

DRUGS (3)
  1. MULTAQ [Suspect]
     Active Substance: DRONEDARONE
     Dosage: DRUG STRUCTURE DOSAGE : 400 MG DRUG INTERVAL DOSAGE : TWICE DAILY
  2. NORTRIPTYLINE [Suspect]
     Active Substance: NORTRIPTYLINE
     Indication: ANTIDEPRESSANT THERAPY
     Dosage: 10 MG
  3. UBRELVY [Concomitant]
     Active Substance: UBROGEPANT
     Indication: HEADACHE
     Dosage: UNK

REACTIONS (1)
  - Contraindicated product prescribed [Unknown]
